FAERS Safety Report 8132391-2 (Version None)
Quarter: 2012Q1

REPORT INFORMATION
  Report Type: 
  Country: None (occurrence: None)
  Receive Date: 20120207
  Receipt Date: 20120127
  Transmission Date: 20120608
  Serious: Yes (Hospitalization)
  Sender: FDA-Public Use
  Company Number: 1000027461

PATIENT
  Age: 46 Year
  Sex: Female

DRUGS (6)
  1. ABILIFY [Suspect]
     Indication: SCHIZOAFFECTIVE DISORDER
     Dosage: 5 MG (5 MG, 1 IN 1 D)
  2. ESCITALOPRAM OXALATE [Suspect]
     Indication: ANXIETY
     Dosage: ORAL, 20 MG (20 MG, 1 IN 1 D), ORAL
     Route: 048
     Dates: start: 20110920
  3. ESCITALOPRAM OXALATE [Suspect]
     Indication: DEPRESSION
     Dosage: ORAL, 20 MG (20 MG, 1 IN 1 D), ORAL
     Route: 048
     Dates: start: 20110920
  4. ESCITALOPRAM OXALATE [Suspect]
     Indication: ANXIETY
     Dosage: ORAL, 20 MG (20 MG, 1 IN 1 D), ORAL
     Route: 048
     Dates: start: 20110712
  5. ESCITALOPRAM OXALATE [Suspect]
     Indication: DEPRESSION
     Dosage: ORAL, 20 MG (20 MG, 1 IN 1 D), ORAL
     Route: 048
     Dates: start: 20110712
  6. ABILIFY [Suspect]
     Indication: SCHIZOAFFECTIVE DISORDER
     Dosage: 10 MG (10 MG, 1 IN 1 D)
     Dates: start: 20110920

REACTIONS (6)
  - VIITH NERVE PARALYSIS [None]
  - STEREOTYPY [None]
  - COUGH [None]
  - MEMORY IMPAIRMENT [None]
  - UNRESPONSIVE TO STIMULI [None]
  - CONVULSION [None]
